FAERS Safety Report 8935481 (Version 1)
Quarter: 2012Q4

REPORT INFORMATION
  Report Type: Spontaneous
  Country: US (occurrence: None)
  Receive Date: 20121128
  Receipt Date: 20121128
  Transmission Date: 20130627
  Serious: Yes (Hospitalization)
  Sender: FDA-Public Use
  Company Number: None

PATIENT
  Age: 60 Year
  Sex: Male
  Weight: 84 kg

DRUGS (13)
  1. ASA [Suspect]
     Indication: CORONARY ARTERY DISEASE
     Dosage: chronic
     Route: 048
  2. PLAVIX [Suspect]
     Indication: ATRIAL FLUTTER
     Dosage: CHRONIC
     Route: 048
  3. ALLOPURINOL [Concomitant]
  4. AMIODARONE [Concomitant]
  5. LIPITOR [Concomitant]
  6. CARVEDILOL [Concomitant]
  7. LASIX [Concomitant]
  8. GLIPIZIDE [Concomitant]
  9. LANTUS [Concomitant]
  10. HUMALOG [Concomitant]
  11. NTG [Concomitant]
  12. PROTONIX [Concomitant]
  13. RANITIDINE [Concomitant]

REACTIONS (5)
  - Haemorrhagic anaemia [None]
  - Upper gastrointestinal haemorrhage [None]
  - Gastrointestinal arteriovenous malformation [None]
  - Hypotension [None]
  - Acute myocardial infarction [None]
